FAERS Safety Report 7619160-4 (Version None)
Quarter: 2011Q3

REPORT INFORMATION
  Report Type: 
  Country: None (occurrence: None)
  Receive Date: 20110718
  Receipt Date: 20110708
  Transmission Date: 20111222
  Serious: Yes (Disabling)
  Sender: FDA-Public Use
  Company Number: US-ASTRAZENECA-2011SE36354

PATIENT
  Age: 43 Year
  Sex: Female
  Weight: 63.5 kg

DRUGS (8)
  1. SEROQUEL [Suspect]
     Route: 048
     Dates: start: 20080501
  2. SEROQUEL [Suspect]
     Indication: MOOD ALTERED
     Route: 048
  3. SEROQUEL [Suspect]
     Route: 048
     Dates: start: 20080501
  4. SEROQUEL [Suspect]
     Route: 048
     Dates: start: 20080501
  5. SEROQUEL [Suspect]
     Indication: PSYCHOTIC DISORDER
     Route: 048
  6. SEROQUEL [Suspect]
     Indication: PSYCHOTIC BEHAVIOUR
     Route: 048
  7. SEROQUEL [Suspect]
     Indication: DEPRESSIVE SYMPTOM
     Route: 048
  8. SEROQUEL [Suspect]
     Route: 048
     Dates: start: 20080501

REACTIONS (7)
  - POSTPARTUM DEPRESSION [None]
  - DISEASE RECURRENCE [None]
  - SCHIZOAFFECTIVE DISORDER [None]
  - SCHIZOPHRENIA, PARANOID TYPE [None]
  - PSYCHOTIC DISORDER [None]
  - ABNORMAL BEHAVIOUR [None]
  - DRUG DOSE OMISSION [None]
